FAERS Safety Report 6000244-1 (Version None)
Quarter: 2008Q4

REPORT INFORMATION
  Report Type: 
  Country: None (occurrence: None)
  Receive Date: 20081211
  Receipt Date: 20081211
  Transmission Date: 20090506
  Serious: Yes (Other)
  Sender: FDA-Public Use
  Company Number: None

PATIENT
  Sex: Female
  Weight: 94.55 kg

DRUGS (7)
  1. LISINOPRIL [Suspect]
     Dosage: 10 MG TABLET 10MG QD ORAL
     Dates: start: 20070604, end: 20081210
  2. ATENOLOL [Concomitant]
  3. EPIPEN [Concomitant]
  4. FLUOCINONIDE [Concomitant]
  5. HYDROCHLOROTHIAZIDE [Concomitant]
  6. MULTI-VITAMINS [Concomitant]
  7. OMEPRAZOLE [Concomitant]

REACTIONS (1)
  - ANGIOEDEMA [None]
